FAERS Safety Report 13323315 (Version 1)
Quarter: 2017Q1

REPORT INFORMATION
  Report Type: Spontaneous
  Country: US (occurrence: US)
  Receive Date: 20170310
  Receipt Date: 20170310
  Transmission Date: 20170428
  Serious: No
  Sender: FDA-Public Use
  Company Number: US-ASTRAZENECA-2017SE22914

PATIENT
  Age: 72 Year
  Weight: 50.8 kg

DRUGS (7)
  1. LOVASTATIN. [Concomitant]
     Active Substance: LOVASTATIN
     Indication: BLOOD CHOLESTEROL ABNORMAL
     Route: 048
     Dates: start: 2005
  2. TRIAMTERENE. [Concomitant]
     Active Substance: TRIAMTERENE
  3. AMLODIPINE [Concomitant]
     Active Substance: AMLODIPINE BESYLATE
     Indication: BLOOD PRESSURE ABNORMAL
     Route: 048
     Dates: start: 2016
  4. OMEPRAZOLE. [Suspect]
     Active Substance: OMEPRAZOLE
     Indication: GASTRIC ULCER
     Route: 048
     Dates: start: 2010
  5. LISINOPRIL. [Suspect]
     Active Substance: LISINOPRIL
     Indication: BLOOD PRESSURE ABNORMAL
     Route: 048
     Dates: start: 2003
  6. CENTRUM SILVER MULTIVITAMIN [Concomitant]
     Indication: HYPOVITAMINOSIS
     Route: 048
     Dates: start: 1995
  7. MULTIVITAMIN [Concomitant]
     Active Substance: VITAMINS
     Route: 048
     Dates: start: 1995

REACTIONS (8)
  - Gastric ulcer [Unknown]
  - Weight decreased [Recovering/Resolving]
  - Visual impairment [Not Recovered/Not Resolved]
  - Herpes zoster [Recovering/Resolving]
  - Facial neuralgia [Not Recovered/Not Resolved]
  - Drug dose omission [Unknown]
  - Polymyalgia rheumatica [Unknown]
  - Dyspepsia [Recovering/Resolving]

NARRATIVE: CASE EVENT DATE: 2007
